FAERS Safety Report 8849738 (Version 1)
Quarter: 2012Q4

REPORT INFORMATION
  Report Type: 
  Country: US (occurrence: US)
  Receive Date: 20121019
  Receipt Date: 20121019
  Transmission Date: 20130627
  Serious: Yes (Disabling)
  Sender: FDA-Public Use
  Company Number: US-BRISTOL-MYERS SQUIBB COMPANY-16765422

PATIENT
  Age: 56 Year
  Sex: Male
  Weight: 69 kg

DRUGS (13)
  1. ABILIFY [Suspect]
     Indication: BIPOLAR DISORDER
     Dosage: 15mg:Dc10-Fb11,Fb12-My12:50mg/D;10mg,q3d on unK dt
dose inc to 20mg
     Dates: start: 201012
  2. HALDOL [Suspect]
     Dosage: Dec10-fb11,Dose reduced from Dc11-23May12 5mg
     Dates: start: 201012
  3. TEGRETOL [Suspect]
     Indication: BIPOLAR DISORDER
     Dosage: Jun12-Jul12:Dose raised by 200 mg each mnth
2tabs
     Dates: start: 2007
  4. KLONOPIN [Suspect]
     Dosage: at nt
1 tab qd prn
  5. ALLOPURINOL [Concomitant]
  6. COREG [Concomitant]
  7. AVODART [Concomitant]
  8. UROXATRAL [Concomitant]
  9. VITAMIN C [Concomitant]
  10. FISH OIL [Concomitant]
  11. LISINOPRIL [Concomitant]
  12. CLONIDINE [Concomitant]
  13. NITROGLYCERIN PATCH [Concomitant]

REACTIONS (6)
  - Anorgasmia [Recovering/Resolving]
  - Erection increased [Unknown]
  - Feeling abnormal [Unknown]
  - Overdose [Unknown]
  - Blood testosterone decreased [Recovering/Resolving]
  - Affect lability [Unknown]
